FAERS Safety Report 5761688-6 (Version None)
Quarter: 2008Q2

REPORT INFORMATION
  Report Type: 
  Country: None (occurrence: None)
  Receive Date: 20080606
  Receipt Date: 20080527
  Transmission Date: 20081010
  Serious: No
  Sender: FDA-Public Use
  Company Number: US-PFIZER INC-2008023200

PATIENT
  Sex: Female
  Weight: 131.81 kg

DRUGS (3)
  1. DILANTIN [Suspect]
     Indication: DYSTONIA
     Route: 048
  2. GLIPIZIDE [Concomitant]
  3. ATENOLOL [Concomitant]

REACTIONS (4)
  - CYSTITIS [None]
  - OEDEMA [None]
  - OEDEMA PERIPHERAL [None]
  - URINARY TRACT INFECTION [None]
